FAERS Safety Report 17350164 (Version 1)
Quarter: 2020Q1

REPORT INFORMATION
  Report Type: Spontaneous
  Country: FR (occurrence: FR)
  Receive Date: 20200130
  Receipt Date: 20200130
  Transmission Date: 20200409
  Serious: Yes (Hospitalization)
  Sender: FDA-Public Use
  Company Number: FR-TEVA-2020-FR-1175208

PATIENT
  Age: 73 Year
  Sex: Female

DRUGS (3)
  1. PAZOPANIB [Suspect]
     Active Substance: PAZOPANIB
     Indication: CLEAR CELL RENAL CELL CARCINOMA
     Dosage: 600 MILLIGRAM DAILY;
     Route: 065
  2. PAZOPANIB [Suspect]
     Active Substance: PAZOPANIB
     Indication: CLEAR CELL RENAL CELL CARCINOMA
     Dosage: 400 MILLIGRAM DAILY;
     Route: 065
  3. IRBESARTAN/ HYDROCHLOROTHIAZIDE [Suspect]
     Active Substance: HYDROCHLOROTHIAZIDE\IRBESARTAN
     Indication: CLEAR CELL RENAL CELL CARCINOMA
     Dosage: CONTINUED AT THE SAME DOSING FOR MORE THAN A YEAR
     Route: 065

REACTIONS (6)
  - Hyponatraemia [Recovered/Resolved]
  - Posterior reversible encephalopathy syndrome [Recovered/Resolved]
  - Acute kidney injury [Recovered/Resolved]
  - Hypertension [Recovered/Resolved]
  - Inappropriate antidiuretic hormone secretion [Recovered/Resolved]
  - Psychomotor retardation [Recovered/Resolved]
